FAERS Safety Report 15678112 (Version 2)
Quarter: 2025Q3

REPORT INFORMATION
  Report Type: Spontaneous
  Country: US (occurrence: US)
  Receive Date: 20181201
  Receipt Date: 20250703
  Transmission Date: 20251021
  Serious: Yes (Other)
  Sender: AUROBINDO
  Company Number: US-AUROBINDO-AUR-APL-2018-056697

PATIENT
  Age: 55 Year
  Sex: Female

DRUGS (4)
  1. PROGESTERONE [Suspect]
     Active Substance: PROGESTERONE
     Indication: Menopausal symptoms
     Route: 048
  2. PROGESTERONE [Suspect]
     Active Substance: PROGESTERONE
     Indication: Loss of libido
  3. TESTOSTERONE [Suspect]
     Active Substance: TESTOSTERONE
     Indication: Loss of libido
     Route: 048
  4. TESTOSTERONE [Suspect]
     Active Substance: TESTOSTERONE
     Indication: Menopausal symptoms

REACTIONS (1)
  - Central serous chorioretinopathy [Recovered/Resolved]
